FAERS Safety Report 4452334-2 (Version None)
Quarter: 2004Q3

REPORT INFORMATION
  Report Type: 
  Country: None (occurrence: None)
  Receive Date: 20040813
  Receipt Date: 20040422
  Transmission Date: 20050211
  Serious: No
  Sender: FDA-Public Use
  Company Number: S04-USA-03314-01

PATIENT
  Age: 78 Year
  Sex: Female

DRUGS (9)
  1. NAMENDA [Suspect]
     Indication: MEMORY IMPAIRMENT
     Dosage: 10 MG QD PO
     Route: 048
     Dates: start: 20040419
  2. NAMENDA [Suspect]
     Indication: TRANSIENT ISCHAEMIC ATTACK
     Dosage: 10 MG QD PO
     Route: 048
     Dates: start: 20040419
  3. NAMENDA [Suspect]
     Indication: MEMORY IMPAIRMENT
     Dosage: 5 MG QD PO
     Route: 048
     Dates: start: 20040412, end: 20040418
  4. NAMENDA [Suspect]
     Indication: TRANSIENT ISCHAEMIC ATTACK
     Dosage: 5 MG QD PO
     Route: 048
     Dates: start: 20040412, end: 20040418
  5. REMERON [Concomitant]
  6. REMINYL [Concomitant]
  7. COUMADIN [Concomitant]
  8. INDERAL [Concomitant]
  9. LANOXIN [Concomitant]

REACTIONS (1)
  - CONFUSIONAL STATE [None]
